FAERS Safety Report 4642732-6 (Version None)
Quarter: 2005Q2

REPORT INFORMATION
  Report Type: 
  Country: None (occurrence: None)
  Receive Date: 20050420
  Receipt Date: 20050404
  Transmission Date: 20051028
  Serious: Yes (Other)
  Sender: FDA-Public Use
  Company Number: GB-2005-002888

PATIENT
  Sex: Female

DRUGS (1)
  1. BETASERON [Suspect]
     Dates: start: 19980101

REACTIONS (1)
  - CARCINOID TUMOUR PULMONARY [None]
